FAERS Safety Report 13041302 (Version 1)
Quarter: 2016Q4

REPORT INFORMATION
  Report Type: Spontaneous
  Country: US (occurrence: US)
  Receive Date: 20161219
  Receipt Date: 20161219
  Transmission Date: 20170207
  Serious: No
  Sender: FDA-Public Use
  Company Number: US-ROCHE-1072539

PATIENT
  Sex: Female

DRUGS (1)
  1. ZELBORAF [Suspect]
     Active Substance: VEMURAFENIB
     Indication: PRODUCT USED FOR UNKNOWN INDICATION
     Route: 048

REACTIONS (12)
  - Hypoaesthesia [Unknown]
  - Arthritis [Unknown]
  - Blister [Unknown]
  - Skin discolouration [Unknown]
  - Eyelid oedema [Unknown]
  - Madarosis [Unknown]
  - Acne [Unknown]
  - Skin papilloma [Unknown]
  - Pain [Unknown]
  - Alopecia [Unknown]
  - Photosensitivity reaction [Unknown]
  - Scab [Unknown]
